FAERS Safety Report 22608391 (Version 1)
Quarter: 2023Q2

REPORT INFORMATION
  Report Type: Other
  Country: MM (occurrence: None)
  Receive Date: 20230616
  Receipt Date: 20230616
  Transmission Date: 20230722
  Serious: Yes (Death)
  Sender: FDA-Public Use
  Company Number: MM-ROCHE-3369236

PATIENT
  Age: 56 Year
  Sex: Male

DRUGS (2)
  1. TECENTRIQ [Suspect]
     Active Substance: ATEZOLIZUMAB
     Indication: Hepatocellular carcinoma
     Route: 041
     Dates: start: 20230210
  2. AVASTIN [Suspect]
     Active Substance: BEVACIZUMAB
     Indication: Hepatocellular carcinoma
     Dosage: DOSE : 400MG (2)UNITS, 100MG (1) UNIT
     Route: 042
     Dates: start: 20230210

REACTIONS (1)
  - Death [Fatal]

NARRATIVE: CASE EVENT DATE: 20230602
